FAERS Safety Report 5804228-5 (Version None)
Quarter: 2008Q3

REPORT INFORMATION
  Report Type: 
  Country: None (occurrence: None)
  Receive Date: 20080707
  Receipt Date: 20080624
  Transmission Date: 20090109
  Serious: Yes (Hospitalization, Other)
  Sender: FDA-Public Use
  Company Number: 2008AL007747

PATIENT
  Age: 47 Year
  Sex: Female

DRUGS (7)
  1. FEVERALL [Suspect]
     Indication: DRUG USE FOR UNKNOWN INDICATION
     Dosage: 2 GRAMS; QD
     Dates: end: 20080101
  2. HYDROCORTISONE 2.5% CREAM [Suspect]
     Indication: DRUG USE FOR UNKNOWN INDICATION
     Dosage: 30 MG; QD
     Dates: end: 20080101
  3. METFORMIN HYDROCHLORIDE [Suspect]
     Indication: OBESITY
     Dosage: 850 MG; QD; PO
     Route: 048
     Dates: start: 20071106, end: 20080101
  4. ELISOR [Concomitant]
  5. LEVOTHYROX [Concomitant]
  6. FERRO SANOL [Concomitant]
  7. HUMATROPE [Concomitant]

REACTIONS (10)
  - ABDOMINAL PAIN [None]
  - ALANINE AMINOTRANSFERASE INCREASED [None]
  - ASPARTATE AMINOTRANSFERASE INCREASED [None]
  - ASTHENIA [None]
  - BLOOD ALKALINE PHOSPHATASE INCREASED [None]
  - BLOOD CREATINE PHOSPHOKINASE INCREASED [None]
  - BLOOD LACTATE DEHYDROGENASE INCREASED [None]
  - HAEMOGLOBIN DECREASED [None]
  - MYALGIA [None]
  - VOMITING [None]
